FAERS Safety Report 6771195-X (Version None)
Quarter: 2010Q2

REPORT INFORMATION
  Report Type: 
  Country: None (occurrence: None)
  Receive Date: 20100616
  Receipt Date: 20100602
  Transmission Date: 20101027
  Serious: Yes (Hospitalization)
  Sender: FDA-Public Use
  Company Number: US-ASTRAZENECA-2010SE27696

PATIENT
  Age: 53 Year
  Sex: Male
  Weight: 94.8 kg

DRUGS (14)
  1. SEROQUEL [Suspect]
     Route: 048
     Dates: start: 20031120
  2. SEROQUEL [Suspect]
     Route: 048
     Dates: start: 20031209
  3. SEROQUEL [Suspect]
     Dosage: 200 MG 1 AM AND 3 HS
     Route: 048
     Dates: start: 20041105
  4. SEROQUEL [Suspect]
     Dosage: 200 MG 4 HS
     Route: 048
     Dates: start: 20060303
  5. SEROQUEL [Suspect]
     Route: 048
     Dates: end: 20060405
  6. AVANDIA [Concomitant]
     Dosage: BID
     Dates: start: 20060101
  7. LITHIUM [Concomitant]
     Dosage: 2 TABS  HS
     Dates: start: 20060101
  8. LIPITOR [Concomitant]
     Dates: start: 20060101
  9. COGENTIN [Concomitant]
     Dates: start: 20031120
  10. COGENTIN [Concomitant]
     Dates: start: 20060101
  11. KLONOPIN [Concomitant]
     Dosage: TID
     Dates: start: 20060101
  12. HALDOL [Concomitant]
     Dates: start: 20031120
  13. HALDOL [Concomitant]
     Dates: start: 20060101
  14. LUVOX [Concomitant]
     Dates: start: 20031120

REACTIONS (6)
  - DIABETES MELLITUS [None]
  - LEUKOCYTOSIS [None]
  - TROPONIN INCREASED [None]
  - TYPE 2 DIABETES MELLITUS [None]
  - VERTIGO [None]
  - WEIGHT DECREASED [None]
